FAERS Safety Report 12614339 (Version 1)
Quarter: 2016Q3

REPORT INFORMATION
  Report Type: Spontaneous
  Country: US (occurrence: None)
  Receive Date: 20160801
  Receipt Date: 20160801
  Transmission Date: 20161109
  Serious: No
  Sender: FDA-Public Use
  Company Number: None

PATIENT
  Age: 53 Year
  Sex: Female

DRUGS (2)
  1. CYCLOSPORINE CAP MOD 100MG [Suspect]
     Active Substance: CYCLOSPORINE
     Indication: REFRACTORY CYTOPENIA WITH UNILINEAGE DYSPLASIA
  2. CYCLOSPORINE CAP MOD 100MG [Suspect]
     Active Substance: CYCLOSPORINE
     Indication: ANAEMIA

REACTIONS (1)
  - Swelling [None]

NARRATIVE: CASE EVENT DATE: 20160726
